FAERS Safety Report 6750471-0 (Version None)
Quarter: 2010Q2

REPORT INFORMATION
  Report Type: 
  Country: None (occurrence: None)
  Receive Date: 20100601
  Receipt Date: 20100520
  Transmission Date: 20101027
  Serious: Yes (Other)
  Sender: FDA-Public Use
  Company Number: JP-GENENTECH-302229

PATIENT

DRUGS (5)
  1. RITUXIMAB [Suspect]
     Indication: B-CELL LYMPHOMA
     Dosage: 375 MG/M2, UNK
     Route: 042
  2. ETOPOSIDE [Suspect]
     Indication: B-CELL LYMPHOMA
     Dosage: 60 MG/M2, UNK
     Route: 042
  3. CARBOPLATIN [Suspect]
     Indication: B-CELL LYMPHOMA
     Dosage: UNK
     Route: 042
  4. METHYLPREDNISOLONE [Suspect]
     Indication: B-CELL LYMPHOMA
     Dosage: 500 MG/M2, UNK
     Route: 042
  5. CYTARABINE [Suspect]
     Indication: B-CELL LYMPHOMA
     Dosage: UNK
     Route: 042

REACTIONS (13)
  - ANAEMIA [None]
  - ARRHYTHMIA [None]
  - FEBRILE NEUTROPENIA [None]
  - HEPATIC FUNCTION ABNORMAL [None]
  - HYPERGLYCAEMIA [None]
  - HYPERTENSION [None]
  - LEUKAEMIA [None]
  - LEUKOPENIA [None]
  - NEPHROPATHY TOXIC [None]
  - RASH [None]
  - SEPSIS [None]
  - THROMBOCYTOPENIA [None]
  - WEIGHT INCREASED [None]
